FAERS Safety Report 18589861 (Version 1)
Quarter: 2020Q4

REPORT INFORMATION
  Report Type: Report from Study
  Country: CA (occurrence: CA)
  Receive Date: 20201208
  Receipt Date: 20201208
  Transmission Date: 20210114
  Serious: Yes (Other)
  Sender: FDA-Public Use
  Company Number: CA-GLAXOSMITHKLINE-CA2020AMR238550

PATIENT
  Sex: Female

DRUGS (2)
  1. PREDNISONE. [Suspect]
     Active Substance: PREDNISONE
     Indication: PRODUCT USED FOR UNKNOWN INDICATION
     Dosage: UNK
  2. MEPOLIZUMAB [Suspect]
     Active Substance: MEPOLIZUMAB
     Indication: ASTHMA
     Dosage: 100 MG, Z (MONTHLY)
     Route: 042
     Dates: start: 20191220

REACTIONS (8)
  - Blood count abnormal [Unknown]
  - Respiratory tract infection [Unknown]
  - Adrenal insufficiency [Unknown]
  - Respiratory tract inflammation [Unknown]
  - Bronchial wall thickening [Unknown]
  - Malaise [Unknown]
  - Obstructive airways disorder [Unknown]
  - Respiratory symptom [Unknown]
